FAERS Safety Report 4965918-X (Version None)
Quarter: 2006Q2

REPORT INFORMATION
  Report Type: 
  Country: None (occurrence: None)
  Receive Date: 20060403
  Receipt Date: 20060320
  Transmission Date: 20061013
  Serious: Yes (Other)
  Sender: FDA-Public Use
  Company Number: 2006038077

PATIENT
  Age: 39 Year
  Sex: Male
  Weight: 85 kg

DRUGS (2)
  1. LYRICA [Suspect]
     Indication: PARTIAL SEIZURES
     Dosage: 150 MG (75 MG, 2 IN 1 D), ORAL
     Route: 048
     Dates: start: 20051221
  2. VALPROATE SODIUM [Concomitant]

REACTIONS (2)
  - HYPOAESTHESIA [None]
  - TRIGEMINAL NERVE DISORDER [None]
